FAERS Safety Report 6135017-2 (Version None)
Quarter: 2009Q1

REPORT INFORMATION
  Report Type: 
  Country: None (occurrence: None)
  Receive Date: 20090327
  Receipt Date: 20090322
  Transmission Date: 20090719
  Serious: Yes (Death, Life-Threatening, Hospitalization, Disabling)
  Sender: FDA-Public Use
  Company Number: US-BAYER-BG-2006-010115

PATIENT
  Age: 70 Year
  Sex: Female
  Weight: 60 kg

DRUGS (27)
  1. FLUDARABINE PHOSPHATE [Suspect]
     Indication: CHRONIC LYMPHOCYTIC LEUKAEMIA
     Route: 042
     Dates: start: 20051018, end: 20060322
  2. MABCAMPATH 10 [Suspect]
     Indication: CHRONIC LYMPHOCYTIC LEUKAEMIA
     Route: 042
     Dates: start: 20051018, end: 20060322
  3. MEDOCEF [Concomitant]
  4. NOVPHILLIN [Concomitant]
  5. DEXAMETHASONE [Concomitant]
  6. BROMHEXIN [Concomitant]
  7. TAVIPEC (EXPECTORANT) [Concomitant]
  8. EGILOK [Concomitant]
     Indication: MYOCARDIAL ISCHAEMIA
     Dosage: 100 MG, UNK
     Route: 048
     Dates: start: 20020101, end: 20060605
  9. PREDNISOLONE F [Concomitant]
     Dosage: UNIT DOSE: 5 MG
  10. AZATRIL [Concomitant]
  11. FUNGOLON [Concomitant]
  12. NYTROLONG [Concomitant]
     Indication: MYOCARDIAL ISCHAEMIA
     Dosage: 20 MG, UNK
     Route: 048
     Dates: start: 20020101, end: 20060605
  13. DIGOXIN [Concomitant]
  14. RINGER [Concomitant]
     Indication: HYPOTENSION
     Dosage: 500 ML, UNK
     Route: 042
     Dates: start: 20060423
  15. ETHAMSYLATE [Concomitant]
     Indication: THROMBOCYTOPENIA
     Dosage: 500 MG, UNK
     Route: 042
     Dates: start: 20060423
  16. FAMOTIDINE [Concomitant]
     Indication: PROPHYLAXIS AGAINST GASTROINTESTINAL ULCER
     Dosage: 20 MG, UNK
     Route: 042
     Dates: start: 20060423
  17. PLATELETS [Concomitant]
     Indication: THROMBOCYTOPENIA
     Dosage: 4 U
     Route: 042
     Dates: start: 20060423
  18. RED BLOOD CELLS [Concomitant]
     Indication: ANAEMIA
     Dosage: 2 U
     Route: 042
     Dates: start: 20060423
  19. METHYLPREDNISOLONE 4MG TAB [Concomitant]
     Indication: THROMBOCYTOPENIA
     Dosage: 75 MG, UNK
     Route: 042
     Dates: start: 20060502
  20. METHYLPREDNISOLONE 4MG TAB [Concomitant]
     Dosage: 190 MG, UNK
     Route: 042
     Dates: start: 20060425, end: 20060502
  21. PLASMA [Concomitant]
     Indication: HYPOALBUMINAEMIA
     Dosage: UNK, UNK
     Dates: start: 20060424
  22. SALINE [Concomitant]
  23. LENOGRASTIM [Concomitant]
  24. SOLU-MEDROL [Concomitant]
  25. DEXTROSE [Concomitant]
  26. CORTICOSTEROIDS [Concomitant]
  27. VITAMINS [Concomitant]

REACTIONS (17)
  - APHTHOUS STOMATITIS [None]
  - CARDIOVASCULAR INSUFFICIENCY [None]
  - EPISTAXIS [None]
  - GASTROINTESTINAL HAEMORRHAGE [None]
  - HAEMORRHAGIC DIATHESIS [None]
  - HEPATITIS [None]
  - HYPOTONIA [None]
  - LYMPHOPENIA [None]
  - MUCOSAL INFLAMMATION [None]
  - NEUTROPENIA [None]
  - PANCYTOPENIA [None]
  - PNEUMONIA [None]
  - RESPIRATORY FAILURE [None]
  - SKIN EXFOLIATION [None]
  - SOMNOLENCE [None]
  - TACHYARRHYTHMIA [None]
  - THROMBOCYTOPENIA [None]
